FAERS Safety Report 4598153-8 (Version None)
Quarter: 2005Q1

REPORT INFORMATION
  Report Type: 
  Country: None (occurrence: None)
  Receive Date: 20050204
  Receipt Date: 20040317
  Transmission Date: 20050727
  Serious: Yes (Hospitalization)
  Sender: FDA-Public Use
  Company Number: PHEH2004US03107

PATIENT
  Age: 73 Year
  Sex: Female

DRUGS (1)
  1. CLOZARIL [Suspect]
     Indication: DEMENTIA ALZHEIMER'S TYPE
     Dosage: 300 MG, QD
     Dates: start: 20000101

REACTIONS (2)
  - INFECTION [None]
  - WHITE BLOOD CELL COUNT INCREASED [None]
